FAERS Safety Report 19931425 (Version 1)
Quarter: 2021Q4

REPORT INFORMATION
  Report Type: Report from Study
  Country: US (occurrence: US)
  Receive Date: 20211007
  Receipt Date: 20211007
  Transmission Date: 20220303
  Serious: Yes (Other)
  Sender: FDA-Public Use
  Company Number: US-ALLERGAN-2133922US

PATIENT
  Sex: Female

DRUGS (1)
  1. CYCLOSPORINE [Interacting]
     Active Substance: CYCLOSPORINE
     Indication: Product used for unknown indication
     Dosage: UNK

REACTIONS (5)
  - Intracranial pressure increased [Unknown]
  - Sinus disorder [Unknown]
  - Visual impairment [Unknown]
  - Drug interaction [Unknown]
  - Brain injury [Not Recovered/Not Resolved]
